FAERS Safety Report 7347479-3 (Version None)
Quarter: 2011Q1

REPORT INFORMATION
  Report Type: 
  Country: None (occurrence: None)
  Receive Date: 20110311
  Receipt Date: 20100909
  Transmission Date: 20110831
  Serious: Yes (Hospitalization, Other)
  Sender: FDA-Public Use
  Company Number: US-BAYER-200942384NA

PATIENT
  Sex: Female
  Weight: 95.238 kg

DRUGS (15)
  1. TRAZODONE HCL [Concomitant]
     Indication: STRESS
     Dosage: UNK UNK, HS
     Dates: start: 20090101
  2. MULTI-VITAMINS [Concomitant]
     Dosage: UNK UNK, QD
  3. YASMIN [Suspect]
     Indication: PRODUCT USED FOR UNKNOWN INDICATION
     Dosage: UNK
     Dates: start: 20080901, end: 20090201
  4. CITALOPRAM [Concomitant]
     Indication: ANXIETY
  5. FISH OIL [Concomitant]
     Dosage: UNK UNK, QD
  6. PROTONIX [Concomitant]
     Indication: ABDOMINAL PAIN UPPER
  7. NAPROXEN [Concomitant]
     Dosage: UNK UNK, PRN
     Dates: start: 20090101, end: 20090201
  8. YAZ [Suspect]
     Indication: PREMENSTRUAL SYNDROME
  9. YAZ [Suspect]
     Indication: CONTRACEPTION
     Dosage: UNK
     Dates: start: 20080301, end: 20090101
  10. CITALOPRAM [Concomitant]
     Indication: STRESS
     Dosage: DAILY DOSE 10 MG
  11. DIOVAN HCT [Concomitant]
     Indication: HYPERTENSION
     Dosage: UNK
     Dates: start: 20080701
  12. TRAZODONE HCL [Concomitant]
     Indication: ANXIETY
  13. TRAZODONE HCL [Concomitant]
     Indication: SLEEP DISORDER THERAPY
  14. NORTREL 7/7/7 [Concomitant]
  15. PROMETRIUM [Concomitant]

REACTIONS (17)
  - VAGINAL HAEMORRHAGE [None]
  - DECREASED APPETITE [None]
  - DIARRHOEA [None]
  - MYALGIA [None]
  - PAIN [None]
  - GASTROOESOPHAGEAL REFLUX DISEASE [None]
  - VOMITING [None]
  - NAUSEA [None]
  - DYSPEPSIA [None]
  - CHOLELITHIASIS [None]
  - ARTHRALGIA [None]
  - ABDOMINAL PAIN UPPER [None]
  - GALLBLADDER DISORDER [None]
  - PROCEDURAL PAIN [None]
  - CHOLECYSTITIS [None]
  - EPICONDYLITIS [None]
  - GALLBLADDER CHOLESTEROLOSIS [None]
